FAERS Safety Report 15531329 (Version 1)
Quarter: 2018Q4

REPORT INFORMATION
  Report Type: Spontaneous
  Country: JP (occurrence: JP)
  Receive Date: 20181019
  Receipt Date: 20181019
  Transmission Date: 20190205
  Serious: Yes (Other)
  Sender: FDA-Public Use
  Company Number: JP-BRISTOL-MYERS SQUIBB COMPANY-BMS-2018-095749

PATIENT
  Age: 41 Year
  Sex: Female

DRUGS (1)
  1. KENACORT-A [Suspect]
     Active Substance: TRIAMCINOLONE
     Indication: RHINITIS
     Dosage: UNK
     Route: 065
     Dates: start: 20180328

REACTIONS (5)
  - Meniere^s disease [Unknown]
  - Herpes zoster [Unknown]
  - Anaemia [Unknown]
  - Blood pressure increased [Not Recovered/Not Resolved]
  - Menstruation irregular [Recovered/Resolved]

NARRATIVE: CASE EVENT DATE: 20180328
